FAERS Safety Report 10196174 (Version 1)
Quarter: 2014Q2

REPORT INFORMATION
  Report Type: Spontaneous
  Country: JP (occurrence: JP)
  Receive Date: 20140527
  Receipt Date: 20140527
  Transmission Date: 20141212
  Serious: Yes (Other)
  Sender: FDA-Public Use
  Company Number: JP-ELI_LILLY_AND_COMPANY-JP201405004668

PATIENT
  Age: 91 Year
  Sex: Male

DRUGS (4)
  1. ZYPREXA [Suspect]
     Indication: DEMENTIA
     Dosage: 2.5 MG, TID
     Route: 048
     Dates: end: 20140509
  2. DEPAKENE-R [Suspect]
     Indication: DEMENTIA
     Dosage: UNK
     Route: 048
     Dates: end: 20140509
  3. DONEPEZIL [Suspect]
     Indication: PRODUCT USED FOR UNKNOWN INDICATION
     Dosage: UNK
     Route: 048
     Dates: end: 20140509
  4. STOMARCON [Suspect]
     Indication: PRODUCT USED FOR UNKNOWN INDICATION
     Dosage: UNK
     Route: 048
     Dates: end: 20140509

REACTIONS (3)
  - Pleural effusion [Unknown]
  - Depressed level of consciousness [Not Recovered/Not Resolved]
  - Off label use [Recovered/Resolved]
